FAERS Safety Report 26022653 (Version 2)
Quarter: 2025Q4

REPORT INFORMATION
  Report Type: Spontaneous
  Country: CH (occurrence: CH)
  Receive Date: 20251110
  Receipt Date: 20251117
  Transmission Date: 20260117
  Serious: Yes (Other)
  Sender: MYLAN
  Company Number: CH-MYLANLABS-2025M1094419

PATIENT
  Age: 81 Year
  Sex: Male

DRUGS (60)
  1. LENALIDOMIDE [Suspect]
     Active Substance: LENALIDOMIDE
     Indication: Plasma cell myeloma
     Dosage: UNK
  2. LENALIDOMIDE [Suspect]
     Active Substance: LENALIDOMIDE
     Dosage: UNK
  3. LENALIDOMIDE [Suspect]
     Active Substance: LENALIDOMIDE
     Dosage: UNK
     Route: 065
  4. LENALIDOMIDE [Suspect]
     Active Substance: LENALIDOMIDE
     Dosage: UNK
     Route: 065
  5. LENALIDOMIDE [Suspect]
     Active Substance: LENALIDOMIDE
     Dosage: 10 MILLIGRAM (IN CYCLE 8, A DOSE REDUCTION TO 10 MG)
     Route: 065
  6. LENALIDOMIDE [Suspect]
     Active Substance: LENALIDOMIDE
     Dosage: 10 MILLIGRAM (IN CYCLE 8, A DOSE REDUCTION TO 10 MG)
     Route: 065
  7. LENALIDOMIDE [Suspect]
     Active Substance: LENALIDOMIDE
     Dosage: 10 MILLIGRAM (IN CYCLE 8, A DOSE REDUCTION TO 10 MG)
  8. LENALIDOMIDE [Suspect]
     Active Substance: LENALIDOMIDE
     Dosage: 10 MILLIGRAM (IN CYCLE 8, A DOSE REDUCTION TO 10 MG)
  9. LENALIDOMIDE [Suspect]
     Active Substance: LENALIDOMIDE
     Dosage: 5 MILLIGRAM (RESTARTED IN CYCLE 10 AT 5 MG)
     Route: 065
  10. LENALIDOMIDE [Suspect]
     Active Substance: LENALIDOMIDE
     Dosage: 5 MILLIGRAM (RESTARTED IN CYCLE 10 AT 5 MG)
  11. LENALIDOMIDE [Suspect]
     Active Substance: LENALIDOMIDE
     Dosage: 5 MILLIGRAM (RESTARTED IN CYCLE 10 AT 5 MG)
  12. LENALIDOMIDE [Suspect]
     Active Substance: LENALIDOMIDE
     Dosage: 5 MILLIGRAM (RESTARTED IN CYCLE 10 AT 5 MG)
     Route: 065
  13. LENALIDOMIDE [Suspect]
     Active Substance: LENALIDOMIDE
     Dosage: UNK (DOSE ADJUSTMENT)
  14. LENALIDOMIDE [Suspect]
     Active Substance: LENALIDOMIDE
     Dosage: UNK (DOSE ADJUSTMENT)
  15. LENALIDOMIDE [Suspect]
     Active Substance: LENALIDOMIDE
     Dosage: UNK (DOSE ADJUSTMENT)
     Route: 065
  16. LENALIDOMIDE [Suspect]
     Active Substance: LENALIDOMIDE
     Dosage: UNK (DOSE ADJUSTMENT)
     Route: 065
  17. DARATUMUMAB [Suspect]
     Active Substance: DARATUMUMAB
     Indication: Plasma cell myeloma
     Dosage: UNK, QW
     Route: 058
     Dates: start: 202409
  18. DARATUMUMAB [Suspect]
     Active Substance: DARATUMUMAB
     Dosage: UNK, QW
     Dates: start: 202409
  19. DARATUMUMAB [Suspect]
     Active Substance: DARATUMUMAB
     Dosage: UNK, QW
     Dates: start: 202409
  20. DARATUMUMAB [Suspect]
     Active Substance: DARATUMUMAB
     Dosage: UNK, QW
     Route: 058
     Dates: start: 202409
  21. DARATUMUMAB [Suspect]
     Active Substance: DARATUMUMAB
     Dosage: UNK, MONTHLY
     Route: 058
  22. DARATUMUMAB [Suspect]
     Active Substance: DARATUMUMAB
     Dosage: UNK, MONTHLY
  23. DARATUMUMAB [Suspect]
     Active Substance: DARATUMUMAB
     Dosage: UNK, MONTHLY
  24. DARATUMUMAB [Suspect]
     Active Substance: DARATUMUMAB
     Dosage: UNK, MONTHLY
     Route: 058
  25. DEXAMETHASONE [Suspect]
     Active Substance: DEXAMETHASONE
     Indication: Plasma cell myeloma
     Dosage: UNK
     Route: 065
  26. DEXAMETHASONE [Suspect]
     Active Substance: DEXAMETHASONE
     Dosage: UNK
  27. DEXAMETHASONE [Suspect]
     Active Substance: DEXAMETHASONE
     Dosage: UNK
  28. DEXAMETHASONE [Suspect]
     Active Substance: DEXAMETHASONE
     Dosage: UNK
     Route: 065
  29. DEXAMETHASONE [Suspect]
     Active Substance: DEXAMETHASONE
     Dosage: 20 MILLIGRAM
     Route: 065
  30. DEXAMETHASONE [Suspect]
     Active Substance: DEXAMETHASONE
     Dosage: 20 MILLIGRAM
  31. DEXAMETHASONE [Suspect]
     Active Substance: DEXAMETHASONE
     Dosage: 20 MILLIGRAM
  32. DEXAMETHASONE [Suspect]
     Active Substance: DEXAMETHASONE
     Dosage: 20 MILLIGRAM
     Route: 065
  33. DEXAMETHASONE [Suspect]
     Active Substance: DEXAMETHASONE
     Dosage: UNK (GRADUALLY TAPERED OFF)
     Route: 065
  34. DEXAMETHASONE [Suspect]
     Active Substance: DEXAMETHASONE
     Dosage: UNK (GRADUALLY TAPERED OFF)
     Route: 065
  35. DEXAMETHASONE [Suspect]
     Active Substance: DEXAMETHASONE
     Dosage: UNK (GRADUALLY TAPERED OFF)
  36. DEXAMETHASONE [Suspect]
     Active Substance: DEXAMETHASONE
     Dosage: UNK (GRADUALLY TAPERED OFF)
  37. PHENPROCOUMON [Concomitant]
     Active Substance: PHENPROCOUMON
     Indication: Embolism venous
     Dosage: UNK
  38. PHENPROCOUMON [Concomitant]
     Active Substance: PHENPROCOUMON
     Dosage: UNK
     Route: 065
  39. PHENPROCOUMON [Concomitant]
     Active Substance: PHENPROCOUMON
     Dosage: UNK
     Route: 065
  40. PHENPROCOUMON [Concomitant]
     Active Substance: PHENPROCOUMON
     Dosage: UNK
  41. ZOLEDRONIC ACID [Concomitant]
     Active Substance: ZOLEDRONIC ACID
     Dosage: UNK
  42. ZOLEDRONIC ACID [Concomitant]
     Active Substance: ZOLEDRONIC ACID
     Dosage: UNK
     Route: 065
  43. ZOLEDRONIC ACID [Concomitant]
     Active Substance: ZOLEDRONIC ACID
     Dosage: UNK
     Route: 065
  44. ZOLEDRONIC ACID [Concomitant]
     Active Substance: ZOLEDRONIC ACID
     Dosage: UNK
  45. CALCIUM [Concomitant]
     Active Substance: CALCIUM
     Dosage: UNK (CALCIUM SUPPLEMENTATION)
  46. CALCIUM [Concomitant]
     Active Substance: CALCIUM
     Dosage: UNK (CALCIUM SUPPLEMENTATION)
     Route: 065
  47. CALCIUM [Concomitant]
     Active Substance: CALCIUM
     Dosage: UNK (CALCIUM SUPPLEMENTATION)
     Route: 065
  48. CALCIUM [Concomitant]
     Active Substance: CALCIUM
     Dosage: UNK (CALCIUM SUPPLEMENTATION)
  49. SULFAMETHOXAZOLE\TRIMETHOPRIM [Concomitant]
     Active Substance: SULFAMETHOXAZOLE\TRIMETHOPRIM
     Indication: Infection prophylaxis
     Dosage: UNK
  50. SULFAMETHOXAZOLE\TRIMETHOPRIM [Concomitant]
     Active Substance: SULFAMETHOXAZOLE\TRIMETHOPRIM
     Dosage: UNK
     Route: 065
  51. SULFAMETHOXAZOLE\TRIMETHOPRIM [Concomitant]
     Active Substance: SULFAMETHOXAZOLE\TRIMETHOPRIM
     Dosage: UNK
     Route: 065
  52. SULFAMETHOXAZOLE\TRIMETHOPRIM [Concomitant]
     Active Substance: SULFAMETHOXAZOLE\TRIMETHOPRIM
     Dosage: UNK
  53. VALACYCLOVIR HYDROCHLORIDE [Concomitant]
     Active Substance: VALACYCLOVIR HYDROCHLORIDE
     Dosage: UNK (DISCONTINUED LATER)
  54. VALACYCLOVIR HYDROCHLORIDE [Concomitant]
     Active Substance: VALACYCLOVIR HYDROCHLORIDE
     Dosage: UNK (DISCONTINUED LATER)
     Route: 065
  55. VALACYCLOVIR HYDROCHLORIDE [Concomitant]
     Active Substance: VALACYCLOVIR HYDROCHLORIDE
     Dosage: UNK (DISCONTINUED LATER)
     Route: 065
  56. VALACYCLOVIR HYDROCHLORIDE [Concomitant]
     Active Substance: VALACYCLOVIR HYDROCHLORIDE
     Dosage: UNK (DISCONTINUED LATER)
  57. RIVAROXABAN [Concomitant]
     Active Substance: RIVAROXABAN
     Dosage: UNK
  58. RIVAROXABAN [Concomitant]
     Active Substance: RIVAROXABAN
     Dosage: UNK
     Route: 065
  59. RIVAROXABAN [Concomitant]
     Active Substance: RIVAROXABAN
     Dosage: UNK
     Route: 065
  60. RIVAROXABAN [Concomitant]
     Active Substance: RIVAROXABAN
     Dosage: UNK

REACTIONS (6)
  - Neutropenia [Recovered/Resolved]
  - Skin toxicity [Recovered/Resolved]
  - Rash maculo-papular [Recovered/Resolved]
  - Rash [Recovered/Resolved]
  - Rash pruritic [Recovered/Resolved]
  - Product use issue [Unknown]
